FAERS Safety Report 9749530 (Version 5)
Quarter: 2014Q2

REPORT INFORMATION
  Report Type: Spontaneous
  Country: BR (occurrence: BR)
  Receive Date: 20131212
  Receipt Date: 20140630
  Transmission Date: 20141212
  Serious: Yes (Disabling, Other)
  Sender: FDA-Public Use
  Company Number: BR-UCBSA-105748

PATIENT
  Age: 52 Year
  Sex: Female
  Weight: 52 kg

DRUGS (6)
  1. CIMZIA [Suspect]
     Indication: RHEUMATOID ARTHRITIS
     Dosage: 200 MG/ML
     Route: 058
     Dates: start: 20131111, end: 20140430
  2. NAXOTEC [Concomitant]
     Indication: PAIN
     Dosage: UNKNOWN DOSE
  3. PURAN T4 [Concomitant]
     Indication: THYROID DISORDER
     Route: 048
     Dates: start: 1999
  4. PREDNISOLONE [Concomitant]
     Indication: RHEUMATOID ARTHRITIS
     Dosage: 5 MG
     Route: 048
     Dates: start: 2007
  5. HUMIRA [Concomitant]
     Dosage: UNK
  6. ENBREL [Concomitant]
     Dosage: UNK

REACTIONS (15)
  - Myalgia [Unknown]
  - Pyrexia [Recovered/Resolved]
  - Application site pain [Unknown]
  - Arthralgia [Not Recovered/Not Resolved]
  - Thirst [Unknown]
  - Alopecia [Not Recovered/Not Resolved]
  - Dry throat [Not Recovered/Not Resolved]
  - Varicose vein [Not Recovered/Not Resolved]
  - Injection site discolouration [Not Recovered/Not Resolved]
  - Weight decreased [Not Recovered/Not Resolved]
  - Joint swelling [Unknown]
  - Drug administration error [Unknown]
  - Joint stiffness [Not Recovered/Not Resolved]
  - Somnolence [Unknown]
  - Drug ineffective [Unknown]
